FAERS Safety Report 13467393 (Version 1)
Quarter: 2017Q2

REPORT INFORMATION
  Report Type: Report from Study
  Country: US (occurrence: US)
  Receive Date: 20170421
  Receipt Date: 20170421
  Transmission Date: 20170830
  Serious: Yes (Hospitalization)
  Sender: FDA-Public Use
  Company Number: US-JNJFOC-20170223010

PATIENT
  Age: 72 Year
  Sex: Male

DRUGS (1)
  1. IMBRUVICA [Suspect]
     Active Substance: IBRUTINIB
     Indication: CHRONIC LYMPHOCYTIC LEUKAEMIA
     Route: 048
     Dates: start: 20161205

REACTIONS (8)
  - Blood potassium decreased [Unknown]
  - Blood bilirubin increased [Unknown]
  - Lymphocyte count increased [Unknown]
  - White blood cells urine positive [Unknown]
  - Gallbladder disorder [Recovered/Resolved]
  - Red blood cells urine positive [Unknown]
  - Neutrophil count decreased [Unknown]
  - Blood glucose abnormal [Unknown]

NARRATIVE: CASE EVENT DATE: 20170201
